FAERS Safety Report 23413125 (Version 1)
Quarter: 2024Q1

REPORT INFORMATION
  Report Type: Spontaneous
  Country: US (occurrence: US)
  Receive Date: 20240117
  Receipt Date: 20240117
  Transmission Date: 20240410
  Serious: No
  Sender: FDA-Public Use
  Company Number: US-NOVOPROD-1128287

PATIENT
  Age: 73 Year
  Sex: Female

DRUGS (2)
  1. OZEMPIC [Suspect]
     Active Substance: SEMAGLUTIDE
     Indication: Product used for unknown indication
     Dosage: CURRENTLY .25 WEEKLY--HAVE TAKEN .5 OVER THE LAST YEAR.
     Route: 058
  2. MOUNJARO [Suspect]
     Active Substance: TIRZEPATIDE
     Indication: Product used for unknown indication
     Dosage: UNK

REACTIONS (2)
  - Epstein-Barr virus infection reactivation [Recovered/Resolved]
  - Tooth infection [Unknown]

NARRATIVE: CASE EVENT DATE: 20220601
